FAERS Safety Report 7550990-3 (Version None)
Quarter: 2011Q2

REPORT INFORMATION
  Report Type: 
  Country: None (occurrence: None)
  Receive Date: 20110616
  Receipt Date: 20110608
  Transmission Date: 20111010
  Serious: Yes (Life-Threatening, Other)
  Sender: FDA-Public Use
  Company Number: IN-ROXANE LABORATORIES, INC.-2011-RO-00794RO

PATIENT
  Age: 27 Year
  Sex: Female

DRUGS (5)
  1. ONDANSETRON [Suspect]
     Indication: PROPHYLAXIS OF NAUSEA AND VOMITING
     Dosage: 4 MG
     Route: 042
  2. METHYLPREDNISOLONE [Suspect]
     Indication: IMMUNOSUPPRESSANT DRUG THERAPY
     Dosage: 500 MG
  3. PRAZOSIN HCL [Suspect]
     Indication: HYPERTENSION
     Route: 048
  4. CLONIDINE [Suspect]
     Indication: HYPERTENSION
     Route: 048
  5. NIFEDIPINE [Suspect]
     Indication: HYPERTENSION
     Route: 048

REACTIONS (4)
  - SINUS BRADYCARDIA [None]
  - HYPOTENSION [None]
  - ELECTROCARDIOGRAM QT PROLONGED [None]
  - BLOOD PH DECREASED [None]
